FAERS Safety Report 24698892 (Version 1)
Quarter: 2024Q4

REPORT INFORMATION
  Report Type: Spontaneous
  Country: US (occurrence: US)
  Receive Date: 20241205
  Receipt Date: 20241205
  Transmission Date: 20250115
  Serious: Yes (Other)
  Sender: BRISTOL-MYERS SQUIBB COMPANY
  Company Number: US-BRISTOL-MYERS SQUIBB COMPANY-2024-185247

PATIENT
  Age: 77 Year
  Sex: Male

DRUGS (1)
  1. LENALIDOMIDE [Suspect]
     Active Substance: LENALIDOMIDE
     Indication: Plasma cell myeloma
     Dosage: TAKE 1 CAPSULE (5MG) BY MOUTH EVERY DAY FOR 21 DAYS ON, 7 DAYS OFF IN A 28-DAY CYCLE
     Route: 048

REACTIONS (7)
  - Fall [Unknown]
  - Shoulder fracture [Unknown]
  - Bone pain [Unknown]
  - Fatigue [Unknown]
  - Haemorrhage [Unknown]
  - Renal impairment [Unknown]
  - Skin disorder [Unknown]
